FAERS Safety Report 10578500 (Version 1)
Quarter: 2014Q4

REPORT INFORMATION
  Report Type: Spontaneous
  Country: NL (occurrence: NL)
  Receive Date: 20141112
  Receipt Date: 20141112
  Transmission Date: 20150529
  Serious: Yes (Life-Threatening)
  Sender: FDA-Public Use
  Company Number: NL-ROCHE-1486699

PATIENT
  Age: 14 Year
  Sex: Male
  Weight: 69 kg

DRUGS (2)
  1. CELLCEPT [Suspect]
     Active Substance: MYCOPHENOLATE MOFETIL\MYCOPHENOLATE MOFETIL HYDROCHLORIDE
     Indication: ECZEMA
     Route: 048
     Dates: start: 20140916, end: 20141015
  2. QVAR [Concomitant]
     Active Substance: BECLOMETHASONE DIPROPIONATE
     Route: 055

REACTIONS (5)
  - Dry skin [Recovered/Resolved]
  - Headache [Recovered/Resolved]
  - Liver disorder [Recovered/Resolved]
  - Shock [Recovered/Resolved]
  - Skin exfoliation [Recovered/Resolved]

NARRATIVE: CASE EVENT DATE: 20140919
